FAERS Safety Report 8385006-2 (Version None)
Quarter: 2012Q2

REPORT INFORMATION
  Report Type: 
  Country: None (occurrence: None)
  Receive Date: 20120524
  Receipt Date: 20120514
  Transmission Date: 20120825
  Serious: Yes (Hospitalization)
  Sender: FDA-Public Use
  Company Number: NL-B.I. PHARMACEUTICALS,INC./RIDGEFIELD-2012-RD-00231EU

PATIENT
  Sex: Female
  Weight: 53.8 kg

DRUGS (13)
  1. ATORVASTATIN CALCIUM [Concomitant]
     Indication: PROPHYLAXIS
  2. ACTOS [Concomitant]
     Indication: TYPE 2 DIABETES MELLITUS
     Dosage: 45 MG
     Route: 048
     Dates: start: 20120217, end: 20120508
  3. CHLOORAMPENICOL [Concomitant]
     Indication: MACULAR OEDEMA
  4. BI 1356 [Suspect]
     Indication: TYPE 2 DIABETES MELLITUS
     Dosage: 5 MG
     Dates: start: 20111027, end: 20120508
  5. FLU VACCINATION [Concomitant]
     Indication: ANTIVIRAL PROPHYLAXIS
     Dates: start: 20111104, end: 20111104
  6. INDAPAMIDE [Concomitant]
     Indication: HYPERTENSION
     Dates: start: 20120213
  7. METFORMIN HCL [Suspect]
     Indication: TYPE 2 DIABETES MELLITUS
     Dosage: 1500 MG
     Route: 048
     Dates: end: 20120502
  8. RANIBIZUMAB [Concomitant]
     Indication: MACULAR OEDEMA
  9. NEXIUM [Concomitant]
     Indication: GASTRITIS
     Dosage: 20 MG
     Route: 048
     Dates: start: 20111229, end: 20120502
  10. PERINDOPRIL ERBUMINE [Concomitant]
     Indication: HYPERTENSION
  11. TRIAL PROCEDURE [Suspect]
     Indication: TYPE 2 DIABETES MELLITUS
  12. STRUMAZOL [Concomitant]
     Indication: HYPERTHYROIDISM
     Dates: start: 20081013, end: 20110506
  13. ASCAL [Concomitant]
     Indication: PROPHYLAXIS

REACTIONS (3)
  - ANAEMIA [None]
  - HYPERGLYCAEMIA [None]
  - DIARRHOEA [None]
